FAERS Safety Report 25460483 (Version 2)
Quarter: 2025Q2

REPORT INFORMATION
  Report Type: Spontaneous
  Country: US (occurrence: US)
  Receive Date: 20250620
  Receipt Date: 20250625
  Transmission Date: 20250716
  Serious: No
  Sender: NOVARTIS
  Company Number: US-002147023-NVSC2025US094606

PATIENT
  Sex: Female

DRUGS (2)
  1. MEKINIST [Suspect]
     Active Substance: TRAMETINIB DIMETHYL SULFOXIDE
     Indication: Breast cancer female
     Dosage: 2 MG, QD
     Route: 048
     Dates: start: 202505
  2. TAFINLAR [Suspect]
     Active Substance: DABRAFENIB MESYLATE
     Indication: Breast cancer female
     Dosage: 150 MG, Q12H
     Route: 048
     Dates: start: 202505

REACTIONS (5)
  - Pain in extremity [Unknown]
  - Bone pain [Unknown]
  - Pain [Unknown]
  - Headache [Unknown]
  - Off label use [Unknown]
